FAERS Safety Report 6447974-5 (Version None)
Quarter: 2009Q4

REPORT INFORMATION
  Report Type: 
  Country: None (occurrence: None)
  Receive Date: 20091120
  Receipt Date: 20091112
  Transmission Date: 20100525
  Serious: Yes (Hospitalization)
  Sender: FDA-Public Use
  Company Number: US-JNJFOC-20091104528

PATIENT
  Sex: Female
  Weight: 60.78 kg

DRUGS (4)
  1. DURAGESIC-100 [Suspect]
     Dosage: 2 X 100 UG/HR + 50 UG/HR PATCH
     Route: 062
  2. DURAGESIC-100 [Suspect]
     Indication: BACK PAIN
     Route: 062
  3. DARVOCET [Concomitant]
     Indication: BREAKTHROUGH PAIN
     Dosage: 100 MG X 2 TIMES A DAY AS NEEDED
     Route: 048
  4. NEURONTIN [Concomitant]
     Indication: CONVULSION
     Route: 048

REACTIONS (14)
  - ANXIETY [None]
  - BACK DISORDER [None]
  - DRUG EXPOSURE DURING PREGNANCY [None]
  - DRUG PRESCRIBING ERROR [None]
  - DYSPEPSIA [None]
  - EATING DISORDER [None]
  - FORMICATION [None]
  - INAPPROPRIATE SCHEDULE OF DRUG ADMINISTRATION [None]
  - INSOMNIA [None]
  - INTERVERTEBRAL DISC PROTRUSION [None]
  - PERFORATED ULCER [None]
  - SEPTIC SHOCK [None]
  - WEIGHT INCREASED [None]
  - WITHDRAWAL SYNDROME [None]
